FAERS Safety Report 4699197-8 (Version None)
Quarter: 2005Q2

REPORT INFORMATION
  Report Type: 
  Country: None (occurrence: None)
  Receive Date: 20050624
  Receipt Date: 20050613
  Transmission Date: 20051028
  Serious: Yes (Hospitalization)
  Sender: FDA-Public Use
  Company Number: US-MERCK-0506USA01979

PATIENT
  Sex: Female

DRUGS (6)
  1. EMEND [Suspect]
     Route: 048
     Dates: start: 20050609, end: 20050611
  2. XANAX [Suspect]
     Route: 048
  3. DOXORUBICIN [Concomitant]
     Route: 065
  4. [THERAPY UNSPECIFIED] [Suspect]
     Route: 065
  5. CYTOXAN [Suspect]
     Route: 065
  6. DECADRON [Suspect]
     Route: 048

REACTIONS (2)
  - DRUG INTERACTION [None]
  - GRAND MAL CONVULSION [None]
